FAERS Safety Report 15791268 (Version 10)
Quarter: 2019Q3

REPORT INFORMATION
  Report Type: Report from Study
  Country: PL (occurrence: PL)
  Receive Date: 20190104
  Receipt Date: 20190702
  Transmission Date: 20191004
  Serious: Yes (Hospitalization, Other)
  Sender: FDA-Public Use
  Company Number: PL-CELGENEUS-POL-20181205509

PATIENT
  Age: 70 Year
  Sex: Female

DRUGS (14)
  1. AZACITIDINE INJECTABLE [Suspect]
     Active Substance: AZACITIDINE
     Indication: MYELODYSPLASTIC SYNDROME
     Route: 058
     Dates: start: 20181203
  2. MLN4924 [Suspect]
     Active Substance: PEVONEDISTAT
     Route: 065
     Dates: start: 20181203, end: 20190304
  3. PLATELETS [Concomitant]
     Active Substance: HUMAN PLATELET, ALLOGENIC
     Indication: THROMBOCYTOPENIA
     Dosage: 4 PACKS
     Route: 065
  4. ETAMSYLATE [Concomitant]
     Active Substance: ETHAMSYLATE
     Indication: PRODUCT USED FOR UNKNOWN INDICATION
     Route: 065
     Dates: start: 20190124, end: 20190124
  5. ENCORTON [Concomitant]
     Active Substance: PREDNISONE
     Indication: PRODUCT USED FOR UNKNOWN INDICATION
     Route: 065
     Dates: start: 20190512
  6. AZACITIDINE INJECTABLE [Suspect]
     Active Substance: AZACITIDINE
     Route: 065
     Dates: start: 20181203, end: 20181207
  7. LOSARTAN POTASSIUM. [Concomitant]
     Active Substance: LOSARTAN POTASSIUM
     Indication: PRODUCT USED FOR UNKNOWN INDICATION
     Route: 065
     Dates: start: 201303
  8. RBC [Concomitant]
     Active Substance: HUMAN RED BLOOD CELL
     Indication: PRODUCT USED FOR UNKNOWN INDICATION
     Dosage: 2PACKS
     Route: 065
  9. LOSARTAN POTASSIUM/HYDROCHLOROTHIAZIDE [Concomitant]
     Active Substance: HYDROCHLOROTHIAZIDE\LOSARTAN POTASSIUM
     Indication: PRODUCT USED FOR UNKNOWN INDICATION
     Route: 065
     Dates: start: 201303
  10. SOLCOSERYL [Concomitant]
     Active Substance: SOLCOSERYL
     Indication: PRODUCT USED FOR UNKNOWN INDICATION
     Route: 065
     Dates: start: 20190401, end: 20190408
  11. AZACITIDINE INJECTABLE [Suspect]
     Active Substance: AZACITIDINE
     Route: 065
     Dates: start: 20181203, end: 20190304
  12. MLN4924 [Suspect]
     Active Substance: PEVONEDISTAT
     Indication: MYELODYSPLASTIC SYNDROME
     Route: 041
     Dates: start: 20181203, end: 20181207
  13. PLATELETS [Concomitant]
     Active Substance: HUMAN PLATELET, ALLOGENIC
     Indication: PRODUCT USED FOR UNKNOWN INDICATION
     Dosage: 3 PACKS
     Route: 065
  14. ONDANSETRON [Concomitant]
     Active Substance: ONDANSETRON
     Indication: PRODUCT USED FOR UNKNOWN INDICATION
     Route: 065
     Dates: start: 20181204, end: 20190510

REACTIONS (6)
  - Tooth abscess [Recovered/Resolved]
  - Thrombocytopenia [Recovered/Resolved]
  - Conjunctival haemorrhage [Recovered/Resolved]
  - Thrombocytopenic purpura [Recovered/Resolved]
  - Thrombocytopenia [Recovered/Resolved]
  - Thrombocytopenia [Recovered/Resolved]

NARRATIVE: CASE EVENT DATE: 20181207
